FAERS Safety Report 9305703 (Version 1)
Quarter: 2013Q2

REPORT INFORMATION
  Report Type: Spontaneous
  Country: US (occurrence: US)
  Receive Date: 20130523
  Receipt Date: 20130523
  Transmission Date: 20140414
  Serious: Yes (Hospitalization)
  Sender: FDA-Public Use
  Company Number: US-BAYER-2013-062394

PATIENT
  Age: 29 Year
  Sex: Female

DRUGS (1)
  1. MIRENA [Suspect]
     Indication: CONTRACEPTION
     Dosage: 20 MCG/24HR, CONT
     Route: 015
     Dates: start: 20130115, end: 20130423

REACTIONS (4)
  - Uterine disorder [Recovered/Resolved]
  - Uterine mass [Recovered/Resolved]
  - Ovarian mass [Recovered/Resolved]
  - Ovarian disorder [Recovered/Resolved]
